FAERS Safety Report 11720243 (Version 1)
Quarter: 2015Q4

REPORT INFORMATION
  Report Type: Spontaneous
  Country: US (occurrence: US)
  Receive Date: 20151110
  Receipt Date: 20151110
  Transmission Date: 20160304
  Serious: Yes (Other)
  Sender: FDA-Public Use
  Company Number: US-BAYER-2015-457393

PATIENT
  Sex: Female

DRUGS (1)
  1. MILK OF MAGNESIA ORIGINAL [Suspect]
     Active Substance: MAGNESIUM HYDROXIDE

REACTIONS (1)
  - Drug dependence [Unknown]
